FAERS Safety Report 12649813 (Version 1)
Quarter: 2016Q3

REPORT INFORMATION
  Report Type: Spontaneous
  Country: PE (occurrence: PE)
  Receive Date: 20160812
  Receipt Date: 20160812
  Transmission Date: 20161109
  Serious: Yes (Other)
  Sender: FDA-Public Use
  Company Number: PE-009507513-1602PER010683

PATIENT
  Age: 3 Year
  Sex: Male

DRUGS (2)
  1. SINGULAIR [Suspect]
     Active Substance: MONTELUKAST SODIUM
     Indication: HYPERSENSITIVITY
     Dosage: 4 MG, 1 ENVELOPE PER DAY
     Route: 048
     Dates: start: 201602, end: 20160730
  2. SINGULAIR [Suspect]
     Active Substance: MONTELUKAST SODIUM
     Dosage: 4 MG, ONCE PER DAY
     Route: 048
     Dates: end: 201601

REACTIONS (5)
  - Cough [Unknown]
  - Abdominal infection [Recovered/Resolved]
  - Influenza [Unknown]
  - Diarrhoea [Recovered/Resolved]
  - Pharyngeal disorder [Unknown]

NARRATIVE: CASE EVENT DATE: 2016
